FAERS Safety Report 8928620 (Version 1)
Quarter: 2012Q4

REPORT INFORMATION
  Report Type: 
  Country: CA (occurrence: CA)
  Receive Date: 20121128
  Receipt Date: 20121128
  Transmission Date: 20130627
  Serious: Yes (Other)
  Sender: FDA-Public Use
  Company Number: PHHY2012CA108373

PATIENT
  Sex: Female

DRUGS (2)
  1. GENTEAL GEL [Suspect]
     Dosage: UNK
     Route: 047
     Dates: start: 201209, end: 201210
  2. PATANOL [Concomitant]
     Indication: HYPERSENSITIVITY

REACTIONS (4)
  - Foreign body in eye [Recovered/Resolved]
  - Eye discharge [Recovered/Resolved]
  - Eye pain [Recovered/Resolved]
  - Foreign body sensation in eyes [Recovered/Resolved]
